FAERS Safety Report 18006774 (Version 2)
Quarter: 2020Q3

REPORT INFORMATION
  Report Type: Spontaneous
  Country: ES (occurrence: ES)
  Receive Date: 20200710
  Receipt Date: 20200805
  Transmission Date: 20201103
  Serious: Yes (Life-Threatening, Other)
  Sender: FDA-Public Use
  Company Number: ES-SUN PHARMACEUTICAL INDUSTRIES LTD-2020R1-252850

PATIENT
  Age: 66 Year
  Sex: Male

DRUGS (5)
  1. LITHIUM. [Interacting]
     Active Substance: LITHIUM
     Indication: COVID-19
     Dosage: 800 MILLIGRAM, DAILY
     Route: 065
  2. DULOXETINE. [Interacting]
     Active Substance: DULOXETINE
     Indication: COVID-19
     Dosage: 120 MILLIGRAM, DAILY
     Route: 065
  3. HYDROXYCHLOROQUINE [Suspect]
     Active Substance: HYDROXYCHLOROQUINE
     Indication: COVID-19
     Dosage: 200 MILLIGRAM, BID
     Route: 065
  4. LOPINAVIR/RITONAVIR [Interacting]
     Active Substance: LOPINAVIR\RITONAVIR
     Indication: COVID-19
     Dosage: 400/200MG, BID
     Route: 065
  5. HALOPERIDOL. [Interacting]
     Active Substance: HALOPERIDOL
     Indication: DELIRIUM
     Dosage: 1 MILLIGRAM, BID
     Route: 065

REACTIONS (16)
  - Hyperhidrosis [Recovering/Resolving]
  - Blood creatinine increased [Recovering/Resolving]
  - Hyperreflexia [Recovering/Resolving]
  - Myoclonus [Recovered/Resolved]
  - Encephalopathy [Recovering/Resolving]
  - Clonus [Recovering/Resolving]
  - Delirium [Recovering/Resolving]
  - Drug interaction [Unknown]
  - Depressed level of consciousness [Recovering/Resolving]
  - Serotonin syndrome [Recovering/Resolving]
  - Hypertension [Recovering/Resolving]
  - Urinary retention [Recovering/Resolving]
  - Off label use [Unknown]
  - Blood creatine phosphokinase increased [Recovering/Resolving]
  - Speech sound disorder [Recovering/Resolving]
  - Tachycardia [Recovering/Resolving]
